FAERS Safety Report 6316639-2 (Version None)
Quarter: 2009Q3

REPORT INFORMATION
  Report Type: 
  Country: None (occurrence: None)
  Receive Date: 20090820
  Receipt Date: 20090812
  Transmission Date: 20100115
  Serious: Yes (Death, Other)
  Sender: FDA-Public Use
  Company Number: US-BAXTER-2009BH011962

PATIENT
  Age: 56 Year
  Sex: Female
  Weight: 84 kg

DRUGS (9)
  1. HEPARIN SODIUM 5,000 UNITS IN DEXTROSE 5% [Suspect]
     Indication: MYOCARDIAL INFARCTION
     Route: 040
     Dates: start: 20090615, end: 20090615
  2. HEPARIN SODIUM 5,000 UNITS IN DEXTROSE 5% [Suspect]
     Route: 042
     Dates: start: 20090615, end: 20090615
  3. HEPARIN SODIUM 5,000 UNITS IN DEXTROSE 5% [Suspect]
     Route: 040
     Dates: start: 20090615, end: 20090615
  4. HEPARIN SODIUM 5,000 UNITS IN DEXTROSE 5% [Suspect]
     Route: 042
     Dates: start: 20090615, end: 20090616
  5. INTEGRILIN [Suspect]
     Indication: MYOCARDIAL INFARCTION
     Route: 042
     Dates: start: 20090616, end: 20090616
  6. INTEGRILIN [Suspect]
  7. ANGIOMAX [Suspect]
     Indication: MYOCARDIAL INFARCTION
     Route: 040
     Dates: start: 20090616, end: 20090616
  8. ANGIOMAX [Suspect]
     Route: 041
     Dates: start: 20080616, end: 20090619
  9. PLAVIX [Suspect]
     Indication: MYOCARDIAL INFARCTION
     Route: 048
     Dates: start: 20090616, end: 20090616

REACTIONS (9)
  - CARDIO-RESPIRATORY ARREST [None]
  - COAGULOPATHY [None]
  - CONVULSION [None]
  - HAEMOTHORAX [None]
  - PLEURAL EFFUSION [None]
  - PULMONARY EMBOLISM [None]
  - RETROPERITONEAL HAEMORRHAGE [None]
  - SHOCK HAEMORRHAGIC [None]
  - UNRESPONSIVE TO STIMULI [None]
